FAERS Safety Report 15962871 (Version 1)
Quarter: 2019Q1

REPORT INFORMATION
  Report Type: Spontaneous
  Country: PT (occurrence: PT)
  Receive Date: 20190214
  Receipt Date: 20190214
  Transmission Date: 20190417
  Serious: Yes (Other)
  Sender: FDA-Public Use
  Company Number: PT-PFIZER INC-2019061473

PATIENT
  Age: 46 Year
  Sex: Female

DRUGS (4)
  1. LETROZOLE. [Concomitant]
     Active Substance: LETROZOLE
     Indication: INVASIVE BREAST CARCINOMA
     Dosage: 2.5 MG, 1X/DAY
     Dates: start: 201701
  2. PALBOCICLIB [Suspect]
     Active Substance: PALBOCICLIB
     Indication: INVASIVE BREAST CARCINOMA
     Dosage: 125 MG, CYCLIC (125MG 1X/DAY 3 WEEKS ON/1 WEEK OFF)
     Dates: start: 201701
  3. DENOSUMAB [Concomitant]
     Active Substance: DENOSUMAB
     Indication: INVASIVE BREAST CARCINOMA
     Dosage: UNK
     Dates: start: 201703
  4. GOSERELIN [Concomitant]
     Active Substance: GOSERELIN
     Indication: INVASIVE BREAST CARCINOMA
     Dosage: 10.8 MG, EVERY 3 MONTHS
     Route: 058
     Dates: start: 201701

REACTIONS (3)
  - Arthralgia [Unknown]
  - Neuropathy peripheral [Unknown]
  - Neutropenia [Unknown]

NARRATIVE: CASE EVENT DATE: 201704
